FAERS Safety Report 11572582 (Version 2)
Quarter: 2015Q4

REPORT INFORMATION
  Report Type: Spontaneous
  Country: US (occurrence: US)
  Receive Date: 20150916
  Receipt Date: 20151027
  Transmission Date: 20160304
  Serious: No
  Sender: FDA-Public Use
  Company Number: US-ELI_LILLY_AND_COMPANY-US200910003684

PATIENT
  Age: 50 Year
  Sex: Female

DRUGS (2)
  1. FORTEO [Suspect]
     Active Substance: TERIPARATIDE
     Indication: OSTEOPOROSIS
     Dosage: 20 UG, DAILY (1/D)
     Dates: start: 200910, end: 2009
  2. FORTEO [Suspect]
     Active Substance: TERIPARATIDE
     Dosage: 20 UG, DAILY (1/D)
     Dates: start: 200910

REACTIONS (15)
  - Incorrect product storage [Unknown]
  - Wrong technique in product usage process [Unknown]
  - Nervousness [Unknown]
  - Injection site reaction [Unknown]
  - Musculoskeletal discomfort [Recovered/Resolved]
  - Anxiety [Unknown]
  - Injection site pain [Unknown]
  - Injection site erythema [Unknown]
  - Hyperhidrosis [Unknown]
  - Feeling hot [Unknown]
  - Injection site bruising [Unknown]
  - Injection site haemorrhage [Unknown]
  - Injection site extravasation [Unknown]
  - Injection site pruritus [Unknown]
  - Injection site injury [Unknown]

NARRATIVE: CASE EVENT DATE: 2009
